FAERS Safety Report 6644476-8 (Version None)
Quarter: 2010Q1

REPORT INFORMATION
  Report Type: 
  Country: None (occurrence: None)
  Receive Date: 20100322
  Receipt Date: 20091217
  Transmission Date: 20100710
  Serious: Yes (Other)
  Sender: FDA-Public Use
  Company Number: US-ROCHE-692200

PATIENT
  Sex: Female
  Weight: 65.8 kg

DRUGS (8)
  1. AVASTIN [Suspect]
     Route: 042
     Dates: start: 20090601
  2. AVASTIN [Suspect]
     Route: 042
     Dates: start: 20090801
  3. AVASTIN [Suspect]
     Route: 042
     Dates: start: 20091001
  4. AVASTIN [Suspect]
     Route: 042
     Dates: start: 20091201
  5. LUCENTIS [Suspect]
     Route: 042
     Dates: start: 20090601, end: 20090801
  6. VERAPAMIL [Concomitant]
  7. LISINOPRIL [Concomitant]
  8. FEMARA [Concomitant]

REACTIONS (2)
  - EYE INFLAMMATION [None]
  - HYPERSENSITIVITY [None]
